FAERS Safety Report 8879847 (Version 1)
Quarter: 2012Q4

REPORT INFORMATION
  Report Type: 
  Country: US (occurrence: US)
  Receive Date: 20121031
  Receipt Date: 20121031
  Transmission Date: 20130627
  Serious: Yes (Other)
  Sender: FDA-Public Use
  Company Number: US-ASTRAZENECA-2012SE80333

PATIENT
  Age: 44 Year
  Sex: Male

DRUGS (3)
  1. SYMBICORT PMDI [Suspect]
     Dosage: UNKNOWN STRENGTH AND FREQUENCY
     Route: 055
  2. NARCOTICS [Concomitant]
     Indication: PAIN
  3. NARCOTICS [Concomitant]
     Indication: ANXIETY

REACTIONS (5)
  - Stab wound [Unknown]
  - Gun shot wound [Unknown]
  - Accident [Unknown]
  - Pain [Unknown]
  - Anxiety [Unknown]
